FAERS Safety Report 8194811-7 (Version None)
Quarter: 2012Q1

REPORT INFORMATION
  Report Type: 
  Country: None (occurrence: None)
  Receive Date: 20120308
  Receipt Date: 20110409
  Transmission Date: 20120608
  Serious: No
  Sender: FDA-Public Use
  Company Number: US-GLAXOSMITHKLINE-A0922059A

PATIENT
  Age: 55 Year
  Sex: Male

DRUGS (2)
  1. NICOTINE POLACRILEX [Suspect]
     Indication: PRODUCT USED FOR UNKNOWN INDICATION
     Dates: start: 20110401, end: 20110409
  2. NICORETTE (MINT) [Concomitant]

REACTIONS (1)
  - ORAL DISCOMFORT [None]
